FAERS Safety Report 7469099-2 (Version None)
Quarter: 2011Q2

REPORT INFORMATION
  Report Type: 
  Country: None (occurrence: None)
  Receive Date: 20110510
  Receipt Date: 20110426
  Transmission Date: 20111010
  Serious: Yes (Death)
  Sender: FDA-Public Use
  Company Number: JP-ELI_LILLY_AND_COMPANY-JP201103000024

PATIENT
  Sex: Female

DRUGS (4)
  1. ZYPREXA [Suspect]
     Indication: SCHIZOPHRENIA
     Dosage: 10 MG, PRN
     Route: 048
     Dates: start: 20110202, end: 20110202
  2. LODOPIN [Concomitant]
     Indication: SCHIZOPHRENIA
     Dosage: 450 MG, QD
     Route: 048
     Dates: start: 20090501, end: 20110202
  3. DEPAKENE [Concomitant]
     Dosage: 1600 MG, QD
     Route: 048
     Dates: end: 20110202
  4. TEGRETOL [Concomitant]
     Dosage: 1200 MG, QD
     Route: 048
     Dates: end: 20110202

REACTIONS (2)
  - CARDIAC FAILURE ACUTE [None]
  - CARDIO-RESPIRATORY ARREST [None]
